FAERS Safety Report 6905007-8 (Version None)
Quarter: 2010Q3

REPORT INFORMATION
  Report Type: 
  Country: None (occurrence: None)
  Receive Date: 20100804
  Receipt Date: 20090824
  Transmission Date: 20110219
  Serious: No
  Sender: FDA-Public Use
  Company Number: US-PFIZER INC-2009198445

PATIENT
  Sex: Female
  Weight: 47.6 kg

DRUGS (2)
  1. LYRICA [Suspect]
     Indication: FIBROMYALGIA
     Dosage: 75 MG, 2X/DAY
     Route: 048
     Dates: start: 20070101
  2. XANAX [Concomitant]
     Dosage: UNK

REACTIONS (7)
  - BREAKTHROUGH PAIN [None]
  - DRUG INEFFECTIVE [None]
  - FIBROMYALGIA [None]
  - INSOMNIA [None]
  - MOBILITY DECREASED [None]
  - SWELLING [None]
  - TENDERNESS [None]
